FAERS Safety Report 20335112 (Version 1)
Quarter: 2022Q1

REPORT INFORMATION
  Report Type: Spontaneous
  Country: FR (occurrence: FR)
  Receive Date: 20220114
  Receipt Date: 20220114
  Transmission Date: 20220423
  Serious: Yes (Other)
  Sender: FDA-Public Use
  Company Number: None

PATIENT
  Age: 25 Year
  Sex: Female
  Weight: 55 kg

DRUGS (1)
  1. DIPROSONE [Suspect]
     Active Substance: BETAMETHASONE DIPROPIONATE
     Indication: Eczema
     Dosage: 1 TUBE PER MONTH FROM 2019 TO 2021, SEVERAL TUBES PER WEEK
     Route: 003
     Dates: start: 20020701, end: 20210612

REACTIONS (1)
  - Steroid dependence [Recovering/Resolving]

NARRATIVE: CASE EVENT DATE: 20180101
